FAERS Safety Report 9767732 (Version 3)
Quarter: 2014Q1

REPORT INFORMATION
  Report Type: Spontaneous
  Country: US (occurrence: US)
  Receive Date: 20131217
  Receipt Date: 20140127
  Transmission Date: 20141002
  Serious: Yes (Other)
  Sender: FDA-Public Use
  Company Number: US-JNJFOC-20131206152

PATIENT
  Sex: Male

DRUGS (8)
  1. REMICADE [Suspect]
     Indication: CROHN^S DISEASE
     Route: 042
     Dates: start: 2000, end: 2013
  2. REMICADE [Suspect]
     Indication: POLYARTHRITIS
     Route: 042
     Dates: start: 2000, end: 2013
  3. METHOTREXATE [Concomitant]
     Indication: PRODUCT USED FOR UNKNOWN INDICATION
     Route: 065
  4. MEROPIRAN [Concomitant]
     Indication: ARTHRITIS
     Route: 065
  5. METOCLOPRAMID [Concomitant]
     Indication: NAUSEA
     Route: 065
  6. ACIPHEX [Concomitant]
     Indication: GASTROOESOPHAGEAL REFLUX DISEASE
     Route: 065
  7. QVAR [Concomitant]
     Route: 065
  8. ALBUTEROL [Concomitant]
     Route: 065

REACTIONS (2)
  - Ventricular extrasystoles [Recovering/Resolving]
  - Dizziness [Not Recovered/Not Resolved]
